FAERS Safety Report 25404307 (Version 1)
Quarter: 2025Q2

REPORT INFORMATION
  Report Type: Spontaneous
  Country: US (occurrence: US)
  Receive Date: 20250606
  Receipt Date: 20250606
  Transmission Date: 20250717
  Serious: Yes (Other)
  Sender: COOPERSURGICAL
  Company Number: US-COOPERSURGICAL, INC.-2025CPS004642

PATIENT
  Age: 32 Year
  Sex: Female
  Weight: 66.213 kg

DRUGS (1)
  1. PARAGARD T 380A [Suspect]
     Active Substance: COPPER
     Indication: Contraception
     Route: 015
     Dates: start: 20231013

REACTIONS (12)
  - Salpingectomy [Recovered/Resolved]
  - Reproductive complication associated with device [Not Recovered/Not Resolved]
  - Complication of device removal [Not Recovered/Not Resolved]
  - Uterine perforation [Recovered/Resolved]
  - Abdominal adhesions [Recovered/Resolved]
  - Foreign body in urogenital tract [Not Recovered/Not Resolved]
  - Fallopian tube adhesion [Not Recovered/Not Resolved]
  - Pelvic organ injury [Unknown]
  - Device dislocation [Recovered/Resolved]
  - Emotional distress [Not Recovered/Not Resolved]
  - Device material issue [Not Recovered/Not Resolved]
  - Pelvic pain [Unknown]

NARRATIVE: CASE EVENT DATE: 20231001
